FAERS Safety Report 21309615 (Version 2)
Quarter: 2022Q3

REPORT INFORMATION
  Report Type: Spontaneous
  Country: US (occurrence: US)
  Receive Date: 20220908
  Receipt Date: 20220921
  Transmission Date: 20221027
  Serious: Yes (Hospitalization, Other)
  Sender: FDA-Public Use
  Company Number: US-MALLINCKRODT-T202204345

PATIENT
  Sex: Male

DRUGS (2)
  1. H.P. ACTHAR [Suspect]
     Active Substance: CORTICOTROPIN
     Indication: Infantile spasms
     Dosage: 0.4 MILLILITER (32 UNITS), BID (TWICE DAY)
     Route: 030
     Dates: start: 20220804
  2. SABRIL [Concomitant]
     Active Substance: VIGABATRIN
     Indication: Product used for unknown indication
     Dosage: UNK
     Route: 065

REACTIONS (11)
  - Blood pressure systolic increased [Unknown]
  - Cortical visual impairment [Unknown]
  - Flatulence [Not Recovered/Not Resolved]
  - Flushing [Unknown]
  - Eye movement disorder [Unknown]
  - Unevaluable event [Unknown]
  - Abdominal distension [Not Recovered/Not Resolved]
  - Vomiting [Unknown]
  - Poor quality sleep [Not Recovered/Not Resolved]
  - Ear infection [Unknown]
  - Therapeutic product effect incomplete [Not Recovered/Not Resolved]

NARRATIVE: CASE EVENT DATE: 20220101
